FAERS Safety Report 10064388 (Version 1)
Quarter: 2014Q2

REPORT INFORMATION
  Report Type: Spontaneous
  Country: GB (occurrence: None)
  Receive Date: 20140404
  Receipt Date: 20140404
  Transmission Date: 20141212
  Serious: Yes (Hospitalization, Other)
  Sender: FDA-Public Use
  Company Number: 2266975

PATIENT
  Age: 65 Year
  Sex: Male

DRUGS (8)
  1. GEMCITABINE HYDROCHLORIDE [Suspect]
     Indication: BLADDER CANCER
     Route: 042
     Dates: start: 20111222, end: 20120417
  2. CISPLATIN [Suspect]
     Indication: BLADDER CANCER
     Route: 042
     Dates: start: 201112, end: 20120417
  3. DEXAMETHASONE [Concomitant]
  4. MACROGOL [Concomitant]
  5. METOCLOPRAMIDE [Concomitant]
  6. ONDANSETRON [Concomitant]
  7. MORPHINE SULPHATE [Concomitant]
  8. THEOPHYLLINE [Concomitant]

REACTIONS (8)
  - Pyrexia [None]
  - Lethargy [None]
  - Back pain [None]
  - Constipation [None]
  - Nausea [None]
  - Chronic obstructive pulmonary disease [None]
  - Dysgeusia [None]
  - Balance disorder [None]
